FAERS Safety Report 9741428 (Version 2)
Quarter: 2013Q4

REPORT INFORMATION
  Report Type: Report from Study
  Country: US (occurrence: US)
  Receive Date: 20131209
  Receipt Date: 20131209
  Transmission Date: 20140711
  Serious: Yes (Other)
  Sender: FDA-Public Use
  Company Number: PHEH2013US024401

PATIENT
  Age: 73 Year
  Sex: Female
  Weight: 41.72 kg

DRUGS (7)
  1. TOBI [Suspect]
     Indication: BRONCHIECTASIS
     Dosage: 300 MG, BID  1/2 DOSE 3 TIMES A WEEK
     Dates: start: 20131118, end: 20131202
  2. TOBI [Suspect]
     Dosage: HALF DOSE 3 TIMES A WEEK
  3. SPIRIVA [Concomitant]
     Dosage: UNK
  4. NASONEX [Concomitant]
     Dosage: UNK
  5. PULMICORT [Concomitant]
     Dosage: UNK
  6. ALBUTEROL [Concomitant]
     Dosage: UNK
  7. PULMOZYME [Concomitant]
     Dosage: UNK

REACTIONS (11)
  - Ear discomfort [Recovering/Resolving]
  - Blepharospasm [Recovering/Resolving]
  - Ear pain [Recovering/Resolving]
  - Headache [Recovering/Resolving]
  - Tinnitus [Recovering/Resolving]
  - Somnolence [Unknown]
  - Asthenopia [Not Recovered/Not Resolved]
  - Migraine [Not Recovered/Not Resolved]
  - Photopsia [Not Recovered/Not Resolved]
  - Fatigue [Not Recovered/Not Resolved]
  - Dysphonia [Unknown]
